FAERS Safety Report 20596148 (Version 2)
Quarter: 2022Q2

REPORT INFORMATION
  Report Type: Spontaneous
  Country: US (occurrence: US)
  Receive Date: 20220315
  Receipt Date: 20220513
  Transmission Date: 20220721
  Serious: No
  Sender: FDA-Public Use
  Company Number: US-PFIZER INC-202200334767

PATIENT
  Age: 55 Year
  Sex: Female

DRUGS (2)
  1. XELJANZ XR [Suspect]
     Active Substance: TOFACITINIB CITRATE
     Indication: Rheumatoid arthritis
     Dosage: 11 MG, DAILY (TAKE 1 TABLET BY MOUTH ONCE DAILY)
     Route: 048
  2. SIMPONI [Concomitant]
     Active Substance: GOLIMUMAB
     Dosage: UNK

REACTIONS (6)
  - Drug ineffective [Unknown]
  - Gastrointestinal disorder [Unknown]
  - Irritable bowel syndrome [Unknown]
  - Pain [Unknown]
  - Fatigue [Unknown]
  - Somnolence [Unknown]
